FAERS Safety Report 20840102 (Version 2)
Quarter: 2022Q2

REPORT INFORMATION
  Report Type: Spontaneous
  Country: US (occurrence: US)
  Receive Date: 20220517
  Receipt Date: 20220601
  Transmission Date: 20220721
  Serious: No
  Sender: FDA-Public Use
  Company Number: US-LUPIN PHARMACEUTICALS INC.-2022-06933

PATIENT
  Age: 76 Year
  Sex: Female
  Weight: 53.968 kg

DRUGS (3)
  1. HYDROCHLOROTHIAZIDE\LOSARTAN POTASSIUM [Suspect]
     Active Substance: HYDROCHLOROTHIAZIDE\LOSARTAN POTASSIUM
     Indication: Hypertension
     Dosage: UNK
     Route: 065
     Dates: start: 20220118
  2. HYDROCHLOROTHIAZIDE\LOSARTAN POTASSIUM [Suspect]
     Active Substance: HYDROCHLOROTHIAZIDE\LOSARTAN POTASSIUM
     Indication: Prophylaxis
  3. LATANOPROST [Concomitant]
     Active Substance: LATANOPROST
     Indication: Eye disorder
     Dosage: UNK
     Route: 065

REACTIONS (3)
  - Abdominal discomfort [Recovered/Resolved]
  - Decreased appetite [Unknown]
  - Recalled product administered [Unknown]

NARRATIVE: CASE EVENT DATE: 20220118
